FAERS Safety Report 21388829 (Version 1)
Quarter: 2022Q3

REPORT INFORMATION
  Report Type: Spontaneous
  Country: US (occurrence: None)
  Receive Date: 20220927
  Receipt Date: 20220927
  Transmission Date: 20221027
  Serious: Yes (Hospitalization)
  Sender: FDA-Public Use
  Company Number: None

PATIENT
  Age: 39 Year
  Sex: Female

DRUGS (1)
  1. SUTENT [Suspect]
     Active Substance: SUNITINIB MALATE
     Dosage: 37.5 MG DAILY ORAL?
     Route: 048
     Dates: start: 202206, end: 202208

REACTIONS (6)
  - Abdominal pain upper [None]
  - Gastrointestinal oedema [None]
  - Nausea [None]
  - Decreased appetite [None]
  - Taste disorder [None]
  - Therapy interrupted [None]

NARRATIVE: CASE EVENT DATE: 20220927
